FAERS Safety Report 17507899 (Version 2)
Quarter: 2020Q1

REPORT INFORMATION
  Report Type: Spontaneous
  Country: JP (occurrence: JP)
  Receive Date: 20200306
  Receipt Date: 20200313
  Transmission Date: 20200409
  Serious: Yes (Other)
  Sender: FDA-Public Use
  Company Number: NVSJ2020JP000469

PATIENT

DRUGS (1)
  1. KYMRIAH [Suspect]
     Active Substance: TISAGENLECLEUCEL
     Indication: DIFFUSE LARGE B-CELL LYMPHOMA
     Dosage: UNK
     Route: 041
     Dates: start: 20191231

REACTIONS (10)
  - Guillain-Barre syndrome [Not Recovered/Not Resolved]
  - VIth nerve paralysis [Not Recovered/Not Resolved]
  - Anti-ganglioside antibody positive [Not Recovered/Not Resolved]
  - Pyrexia [Unknown]
  - Platelet count decreased [Recovered/Resolved]
  - Peripheral nerve lesion [Not Recovered/Not Resolved]
  - White blood cell count decreased [Recovered/Resolved]
  - Cytomegalovirus infection [Recovered/Resolved]
  - Red blood cell count decreased [Recovered/Resolved]
  - Cytokine release syndrome [Recovered/Resolved]

NARRATIVE: CASE EVENT DATE: 20200110
